FAERS Safety Report 24721963 (Version 1)
Quarter: 2024Q4

REPORT INFORMATION
  Report Type: Spontaneous
  Country: DE (occurrence: DE)
  Receive Date: 20241211
  Receipt Date: 20241211
  Transmission Date: 20250115
  Serious: No
  Sender: TOLMAR
  Company Number: DE-TOLMAR, INC.-24DE054548

PATIENT

DRUGS (1)
  1. ELIGARD [Suspect]
     Active Substance: LEUPROLIDE ACETATE
     Indication: Product used for unknown indication
     Dosage: 22.5 MILLIGRAM

REACTIONS (4)
  - Intercepted product preparation error [Unknown]
  - Product packaging quantity issue [Unknown]
  - Product lot number issue [Unknown]
  - Product expiration date issue [Unknown]
